FAERS Safety Report 19670181 (Version 1)
Quarter: 2021Q3

REPORT INFORMATION
  Report Type: Spontaneous
  Country: CN (occurrence: CN)
  Receive Date: 20210806
  Receipt Date: 20210806
  Transmission Date: 20211014
  Serious: Yes (Other)
  Sender: FDA-Public Use
  Company Number: CN-ASTRAZENECA-2021A668299

PATIENT
  Age: 15051 Day
  Sex: Male
  Weight: 60 kg

DRUGS (4)
  1. ESOMEPRAZOLE MAGNESIUM. [Suspect]
     Active Substance: ESOMEPRAZOLE MAGNESIUM
     Indication: GASTROINTESTINAL HAEMORRHAGE
     Route: 048
     Dates: start: 20210629, end: 20210729
  2. CILASTATIN SODIUM [Concomitant]
     Active Substance: CILASTATIN SODIUM
     Indication: FUNGAL INFECTION
     Dosage: 2 BRANCHES TID
     Route: 065
     Dates: start: 20210629, end: 20210702
  3. ILAPRAZOLE SODIUM [Suspect]
     Active Substance: ILAPRAZOLE
     Indication: GASTROINTESTINAL HAEMORRHAGE
     Dosage: 2 BRANCHES TID
     Route: 065
     Dates: start: 20210629, end: 20210708
  4. VORICONAZOLE. [Concomitant]
     Active Substance: VORICONAZOLE
     Indication: FUNGAL INFECTION
     Dosage: 1 BRANCH BID
     Route: 065
     Dates: start: 20210629, end: 20210703

REACTIONS (6)
  - Pneumonia fungal [Recovered/Resolved]
  - Neurosis [Recovered/Resolved]
  - Loss of consciousness [Recovered/Resolved]
  - Status epilepticus [Recovered/Resolved]
  - Pneumonia bacterial [Recovered/Resolved]
  - Unresponsive to stimuli [Recovered/Resolved]

NARRATIVE: CASE EVENT DATE: 20210703
